FAERS Safety Report 21330866 (Version 1)
Quarter: 2022Q3

REPORT INFORMATION
  Report Type: Spontaneous
  Country: DE (occurrence: DE)
  Receive Date: 20220914
  Receipt Date: 20220914
  Transmission Date: 20221026
  Serious: Yes (Death, Life-Threatening, Congenital Anomaly, Other)
  Sender: FDA-Public Use
  Company Number: DE-BFARM-22006268

PATIENT
  Sex: Male

DRUGS (7)
  1. METFORMIN [Suspect]
     Active Substance: METFORMIN HYDROCHLORIDE
     Indication: Type 2 diabetes mellitus
     Dosage: UNK
     Route: 064
     Dates: start: 20210305, end: 20210426
  2. PRAMIPEXOLE [Suspect]
     Active Substance: PRAMIPEXOLE
     Indication: Restless legs syndrome
     Dosage: UNK (0.54 [MG/D ]/ IF REQUIRED, 0.36 TO 0.54 MG DAILY)
     Route: 064
     Dates: start: 20210305, end: 20210704
  3. ZOPICLONE [Suspect]
     Active Substance: ZOPICLONE
     Indication: Product used for unknown indication
     Dosage: UNK (7.5 [MG/D ])
     Route: 064
     Dates: start: 20210305, end: 20210401
  4. TILIDINE [Suspect]
     Active Substance: TILIDINE
     Indication: Product used for unknown indication
     Dosage: UNK (100 [MG/D ])
     Route: 064
     Dates: start: 20210305, end: 20210401
  5. OPIPRAMOL [Concomitant]
     Active Substance: OPIPRAMOL
     Indication: Product used for unknown indication
     Dosage: UNK (100 [MG/D (BIS 50) ])
     Route: 064
     Dates: start: 20210426, end: 20210704
  6. HUMALOG [Concomitant]
     Active Substance: INSULIN LISPRO
     Indication: Type 2 diabetes mellitus
     Dosage: UNK
     Route: 064
     Dates: start: 20210427, end: 20210704
  7. LEVEMIR [Concomitant]
     Active Substance: INSULIN DETEMIR
     Indication: Type 2 diabetes mellitus
     Dosage: UNK
     Route: 064
     Dates: start: 20210427, end: 20210704

REACTIONS (6)
  - Renal aplasia [Fatal]
  - Hemivertebra [Not Recovered/Not Resolved]
  - Congenital musculoskeletal disorder of limbs [Not Recovered/Not Resolved]
  - Heart disease congenital [Not Recovered/Not Resolved]
  - VACTERL syndrome [Not Recovered/Not Resolved]
  - Foetal exposure during pregnancy [Unknown]
